FAERS Safety Report 6786750-0 (Version None)
Quarter: 2010Q2

REPORT INFORMATION
  Report Type: 
  Country: None (occurrence: None)
  Receive Date: 20100623
  Receipt Date: 20100610
  Transmission Date: 20101027
  Serious: No
  Sender: FDA-Public Use
  Company Number: DE-ELI_LILLY_AND_COMPANY-DE201006003844

PATIENT
  Sex: Female

DRUGS (3)
  1. ZYPADHERA [Suspect]
     Dosage: 300 MG, UNK
     Route: 030
  2. ASPIRIN [Concomitant]
  3. LAMOTRIGINE [Concomitant]

REACTIONS (2)
  - BLOOD TRIGLYCERIDES INCREASED [None]
  - PLATELET COUNT INCREASED [None]
